FAERS Safety Report 25351241 (Version 1)
Quarter: 2025Q2

REPORT INFORMATION
  Report Type: Spontaneous
  Country: RO (occurrence: RO)
  Receive Date: 20250523
  Receipt Date: 20250523
  Transmission Date: 20250717
  Serious: Yes (Hospitalization, Other)
  Sender: NOVITIUM PHARMA
  Company Number: RO-NOVITIUMPHARMA-2025RONVP01194

PATIENT
  Age: 50 Year
  Sex: Female

DRUGS (8)
  1. PAROXETINE [Suspect]
     Active Substance: PAROXETINE
     Indication: Depression
  2. METHIMAZOLE [Concomitant]
     Active Substance: METHIMAZOLE
     Indication: Toxic nodular goitre
  3. SODIUM CHLORIDE [Concomitant]
     Active Substance: SODIUM CHLORIDE
     Indication: Product used for unknown indication
  4. Sodium-carbonate [Concomitant]
     Indication: Product used for unknown indication
  5. MANNITOL [Concomitant]
     Active Substance: MANNITOL
     Indication: Product used for unknown indication
  6. FENTANYL [Concomitant]
     Active Substance: FENTANYL
     Indication: Product used for unknown indication
  7. MIDAZOLAM [Concomitant]
     Active Substance: MIDAZOLAM
     Indication: Product used for unknown indication
  8. DESMOPRESSIN [Concomitant]
     Active Substance: DESMOPRESSIN
     Indication: Product used for unknown indication

REACTIONS (7)
  - Polydipsia psychogenic [Unknown]
  - Hypotonia [Unknown]
  - Metabolic acidosis [Unknown]
  - Respiratory arrest [Unknown]
  - Generalised tonic-clonic seizure [Unknown]
  - Coma [Unknown]
  - Hyponatraemia [Unknown]
